FAERS Safety Report 7444790-2 (Version None)
Quarter: 2011Q2

REPORT INFORMATION
  Report Type: 
  Country: None (occurrence: None)
  Receive Date: 20110429
  Receipt Date: 20110421
  Transmission Date: 20111010
  Serious: Yes (Congenital Anomaly)
  Sender: FDA-Public Use
  Company Number: US-PFIZER INC-2011089753

PATIENT

DRUGS (3)
  1. SERTRALINE HYDROCHLORIDE [Suspect]
     Dosage: 200 MG, 1X/DAY
     Route: 064
     Dates: start: 20100701
  2. SERTRALINE HYDROCHLORIDE [Suspect]
     Dosage: 100 MG, ONE AND HALF TABLET EVERY MORNING
     Route: 064
     Dates: start: 20090801, end: 20100101
  3. SERTRALINE HYDROCHLORIDE [Suspect]
     Dosage: 100 MG ONE TABLET DAILY
     Route: 064
     Dates: start: 20090101, end: 20090101

REACTIONS (2)
  - CONGENITAL ANOMALY [None]
  - DRUG EXPOSURE DURING PREGNANCY [None]
